FAERS Safety Report 6410511-5 (Version None)
Quarter: 2009Q4

REPORT INFORMATION
  Report Type: 
  Country: None (occurrence: None)
  Receive Date: 20091022
  Receipt Date: 20091015
  Transmission Date: 20100525
  Serious: Yes (Other)
  Sender: FDA-Public Use
  Company Number: DE-BAYER-200934331GPV

PATIENT
  Age: 65 Year
  Sex: Male
  Weight: 60 kg

DRUGS (16)
  1. MICARDIS [Suspect]
     Indication: HYPERTENSION
     Route: 048
     Dates: start: 20081121, end: 20090629
  2. MICARDIS [Suspect]
     Route: 048
     Dates: end: 20081120
  3. ADALAT CC [Suspect]
     Indication: HYPERTENSION
     Route: 048
     Dates: end: 20081120
  4. ADALAT [Suspect]
     Indication: HYPERTENSION
     Route: 048
     Dates: start: 20081121
  5. CALBLOCK [Concomitant]
     Indication: HYPERTENSION
     Route: 048
  6. CARDENALIN [Concomitant]
     Indication: HYPERTENSION
     Route: 048
  7. AMLODIPINE [Concomitant]
     Indication: HYPERTENSION
     Route: 048
     Dates: start: 20081121
  8. ASPIRIN [Concomitant]
     Indication: ARTERIOSCLEROSIS
     Route: 048
  9. PLETAL [Concomitant]
     Indication: ARTERIOSCLEROSIS
     Route: 048
     Dates: start: 20081121
  10. ANPLAG [Concomitant]
     Route: 048
     Dates: end: 20081120
  11. PLAVIX [Concomitant]
     Indication: ARTERIOSCLEROSIS
     Route: 048
  12. FULSTAN [Concomitant]
     Indication: HYPERPARATHYROIDISM SECONDARY
     Route: 048
  13. DIART [Concomitant]
     Indication: POLYURIA
     Route: 048
     Dates: end: 20081120
  14. LASIX [Concomitant]
     Indication: POLYURIA
     Route: 048
     Dates: start: 20081121
  15. TAKEPRON [Concomitant]
     Indication: REFLUX OESOPHAGITIS
     Route: 048
  16. CLARITIN [Concomitant]
     Indication: PRURITUS
     Route: 048

REACTIONS (4)
  - BLOOD CREATINE PHOSPHOKINASE INCREASED [None]
  - DIALYSIS [None]
  - HYPOAESTHESIA [None]
  - RHABDOMYOLYSIS [None]
